FAERS Safety Report 11300247 (Version 1)
Quarter: 2015Q3

REPORT INFORMATION
  Report Type: Spontaneous
  Country: US (occurrence: US)
  Receive Date: 20150722
  Receipt Date: 20150722
  Transmission Date: 20151125
  Serious: No
  Sender: FDA-Public Use
  Company Number: US-ELI_LILLY_AND_COMPANY-US201308005740

PATIENT
  Sex: Female

DRUGS (3)
  1. GLUCOSAMINE [Concomitant]
     Active Substance: GLUCOSAMINE
     Indication: PROPHYLAXIS
  2. EVISTA [Suspect]
     Active Substance: RALOXIFENE HYDROCHLORIDE
     Indication: OSTEOPENIA
     Dosage: UNK, QD
     Dates: start: 200108, end: 20130815
  3. VITAMIN C [Concomitant]
     Active Substance: ASCORBIC ACID
     Indication: PROPHYLAXIS

REACTIONS (4)
  - Pain [Unknown]
  - Muscle spasms [Recovered/Resolved]
  - Cystitis [Unknown]
  - Breast dysplasia [Unknown]

NARRATIVE: CASE EVENT DATE: 20130811
